FAERS Safety Report 8153194-9 (Version None)
Quarter: 2012Q1

REPORT INFORMATION
  Report Type: 
  Country: None (occurrence: None)
  Receive Date: 20120221
  Receipt Date: 20120213
  Transmission Date: 20120608
  Serious: Yes (Hospitalization, Other)
  Sender: FDA-Public Use
  Company Number: GB-UCBSA-048673

PATIENT
  Age: 42 Year

DRUGS (2)
  1. PREDNISOLONE [Concomitant]
     Dates: start: 20110501, end: 20111201
  2. KEPPRA [Suspect]
     Indication: EPILEPSY
     Dates: start: 20090901

REACTIONS (4)
  - STIFF PERSON SYNDROME [None]
  - VOMITING [None]
  - MYALGIA [None]
  - DECREASED APPETITE [None]
